FAERS Safety Report 7714909-4 (Version None)
Quarter: 2011Q3

REPORT INFORMATION
  Report Type: 
  Country: None (occurrence: None)
  Receive Date: 20110829
  Receipt Date: 20110817
  Transmission Date: 20111222
  Serious: Yes (Death, Other)
  Sender: FDA-Public Use
  Company Number: NO-PFIZER INC-2011050721

PATIENT
  Age: 73 Year
  Sex: Male

DRUGS (6)
  1. METOPROLOL SUCCINATE [Concomitant]
  2. AMIODARONE HCL [Suspect]
     Indication: ARRHYTHMIA
     Dosage: 200 MG, 1X/DAY
     Route: 048
     Dates: start: 20090412, end: 20100609
  3. PANTOPRAZOLE [Concomitant]
  4. CIPROFLOXACIN [Concomitant]
  5. RAMIPRIL [Concomitant]
  6. BUMETANIDE [Concomitant]

REACTIONS (6)
  - DEATH [None]
  - PNEUMONITIS [None]
  - DYSPNOEA [None]
  - COUGH [None]
  - PNEUMOTHORAX [None]
  - CARDIAC FAILURE [None]
